FAERS Safety Report 4854711-4 (Version None)
Quarter: 2005Q4

REPORT INFORMATION
  Report Type: 
  Country: None (occurrence: None)
  Receive Date: 20051214
  Receipt Date: 20051214
  Transmission Date: 20060501
  Serious: Yes (Hospitalization)
  Sender: FDA-Public Use
  Company Number: None

PATIENT
  Age: 67 Year
  Sex: Male
  Weight: 84.8226 kg

DRUGS (3)
  1. PACLITAXEL [Suspect]
     Indication: LUNG NEOPLASM MALIGNANT
     Dosage: 209 MG
     Dates: start: 20051014, end: 20051212
  2. CARBOPLATIN [Suspect]
     Indication: LUNG NEOPLASM MALIGNANT
     Dosage: 796 MG
     Dates: start: 20051014, end: 20051212
  3. CETUXIMAB [Suspect]
     Indication: LUNG NEOPLASM MALIGNANT
     Dosage: 522 MG
     Dates: start: 20051014, end: 20051212

REACTIONS (4)
  - DEEP VEIN THROMBOSIS [None]
  - HYPOTHERMIA [None]
  - PERICARDIAL EFFUSION [None]
  - PULMONARY OEDEMA [None]
